FAERS Safety Report 10082250 (Version 1)
Quarter: 2014Q2

REPORT INFORMATION
  Report Type: Spontaneous
  Country: FR (occurrence: FR)
  Receive Date: 20140416
  Receipt Date: 20140416
  Transmission Date: 20141212
  Serious: Yes (Hospitalization)
  Sender: FDA-Public Use
  Company Number: PHHY2014FR044745

PATIENT
  Age: 77 Year
  Sex: Female

DRUGS (8)
  1. RASILEZ HCT [Suspect]
     Indication: HYPERTENSION
     Dosage: 1 DF, DAILY (ALIS 300 MG, HCTZ 12.5 MG)
     Route: 048
     Dates: start: 2011, end: 20140224
  2. DOMPERIDONE [Suspect]
     Indication: NAUSEA
     Dosage: UNK UKN, PRN
     Route: 048
     Dates: end: 20140224
  3. CORDARONE [Suspect]
     Dosage: 1 DF, DAILY (200 MG)
     Route: 048
     Dates: end: 20140224
  4. SEROPLEX [Suspect]
     Dosage: 1 DF, DAILY (10 MG)
     Route: 048
     Dates: end: 20140224
  5. XARELTO [Concomitant]
     Dosage: 15 MG, UNK
  6. LEVOTHYROX [Concomitant]
     Dosage: UNK UKN, UNK
  7. MODOPAR [Concomitant]
     Dosage: UNK UKN, UNK
  8. INEXIUM//ESOMEPRAZOLE MAGNESIUM [Concomitant]
     Dosage: 40 MG, UNK

REACTIONS (5)
  - Bradycardia [Recovered/Resolved]
  - Fall [Recovered/Resolved]
  - Hypokalaemia [Recovered/Resolved]
  - Electrocardiogram QT prolonged [Recovered/Resolved]
  - Malaise [Recovered/Resolved]
